FAERS Safety Report 17584119 (Version 2)
Quarter: 2020Q2

REPORT INFORMATION
  Report Type: Spontaneous
  Country: DE (occurrence: DE)
  Receive Date: 20200326
  Receipt Date: 20200401
  Transmission Date: 20200713
  Serious: Yes (Hospitalization)
  Sender: FDA-Public Use
  Company Number: DE-MYLANLABS-2020M1031719

PATIENT
  Age: 36 Year
  Sex: Female
  Weight: 71 kg

DRUGS (2)
  1. PANTOPRAZOL                        /01263201/ [Concomitant]
     Active Substance: PANTOPRAZOLE
     Dosage: 40 MG, 1-0-0-0
  2. SERTRALINE [Suspect]
     Active Substance: SERTRALINE HYDROCHLORIDE
     Indication: PRODUCT USED FOR UNKNOWN INDICATION
     Dosage: 100 MG, 1-0-0-0

REACTIONS (7)
  - Abdominal pain upper [Unknown]
  - Headache [Unknown]
  - General physical health deterioration [Unknown]
  - Nausea [Unknown]
  - Abdominal pain [Unknown]
  - Dizziness [Unknown]
  - Haematochezia [Unknown]
